FAERS Safety Report 10657900 (Version 1)
Quarter: 2014Q4

REPORT INFORMATION
  Report Type: Spontaneous
  Country: US (occurrence: US)
  Receive Date: 20141217
  Receipt Date: 20141217
  Transmission Date: 20150529
  Serious: No
  Sender: FDA-Public Use
  Company Number: US-BAUSCH-BL-2014-005006

PATIENT
  Sex: Male

DRUGS (6)
  1. XENAZINE [Suspect]
     Active Substance: TETRABENAZINE
     Dosage: 1 TABLET MIDDAY
     Route: 048
     Dates: start: 2014
  2. XENAZINE [Suspect]
     Active Substance: TETRABENAZINE
     Indication: TOURETTE^S DISORDER
     Route: 048
     Dates: start: 201408
  3. XENAZINE [Suspect]
     Active Substance: TETRABENAZINE
     Dosage: 1 TABLET IN THE MORNING AND 1 TABLET AT BEDTIME
     Route: 048
     Dates: start: 2014
  4. XENAZINE [Suspect]
     Active Substance: TETRABENAZINE
     Route: 048
     Dates: start: 2014
  5. XENAZINE [Suspect]
     Active Substance: TETRABENAZINE
     Dosage: 2 TABLETS IN THE MORNING
     Route: 048
     Dates: start: 2014
  6. XENAZINE [Suspect]
     Active Substance: TETRABENAZINE
     Dosage: 2 TABLETS AT BEDTIME
     Route: 048
     Dates: start: 2014

REACTIONS (3)
  - Laziness [Unknown]
  - Somnolence [Unknown]
  - Intentional product use issue [Not Recovered/Not Resolved]

NARRATIVE: CASE EVENT DATE: 2014
